FAERS Safety Report 4924628-5 (Version None)
Quarter: 2006Q1

REPORT INFORMATION
  Report Type: 
  Country: None (occurrence: None)
  Receive Date: 20060222
  Receipt Date: 20060208
  Transmission Date: 20060701
  Serious: Yes (Hospitalization)
  Sender: FDA-Public Use
  Company Number: B0411642A

PATIENT
  Age: 70 Year
  Sex: Male

DRUGS (1)
  1. THIOGUANINE [Suspect]
     Indication: ACUTE MYELOID LEUKAEMIA

REACTIONS (6)
  - ANOREXIA [None]
  - ASTHENIA [None]
  - HIDRADENITIS [None]
  - MALAISE [None]
  - PYREXIA [None]
  - SKIN LESION [None]
